FAERS Safety Report 8847255 (Version 2)
Quarter: 2012Q4

REPORT INFORMATION
  Report Type: Report from Study
  Country: DE (occurrence: DE)
  Receive Date: 20121018
  Receipt Date: 20121109
  Transmission Date: 20130627
  Serious: Yes (Hospitalization)
  Sender: FDA-Public Use
  Company Number: DE-ROCHE-1143987

PATIENT
  Age: 74 Year
  Sex: Female
  Weight: 57 kg

DRUGS (2)
  1. RITUXIMAB [Suspect]
     Indication: LYMPHOMA
     Route: 042
     Dates: start: 20110329
  2. BENDAMUSTINE [Suspect]
     Indication: LYMPHOMA
     Route: 042
     Dates: start: 20110330

REACTIONS (1)
  - VIIth nerve paralysis [Recovered/Resolved]
